FAERS Safety Report 12681515 (Version 2)
Quarter: 2016Q3

REPORT INFORMATION
  Report Type: Spontaneous
  Country: US (occurrence: US)
  Receive Date: 20160824
  Receipt Date: 20160825
  Transmission Date: 20161109
  Serious: Yes (Other)
  Sender: FDA-Public Use
  Company Number: US-SA-2016SA036142

PATIENT
  Age: 84 Year
  Sex: Female

DRUGS (3)
  1. SOLOSTAR [Suspect]
     Active Substance: DEVICE
     Indication: TYPE 1 DIABETES MELLITUS
     Dates: start: 20140721
  2. LANTUS SOLOSTAR [Suspect]
     Active Substance: INSULIN GLARGINE
     Indication: TYPE 1 DIABETES MELLITUS
     Dosage: DOSE:8 UNIT(S)
     Route: 065
     Dates: start: 20140721
  3. NOVOLOG [Concomitant]
     Active Substance: INSULIN ASPART

REACTIONS (11)
  - Joint injury [Unknown]
  - Wrong technique in product usage process [Unknown]
  - Product use issue [Unknown]
  - Skin irritation [Recovered/Resolved]
  - Limb injury [Unknown]
  - Seizure [Unknown]
  - Fall [Unknown]
  - Blood glucose decreased [Unknown]
  - Blood glucose increased [Recovered/Resolved]
  - Glycosylated haemoglobin increased [Unknown]
  - Intentional product misuse [Unknown]
